FAERS Safety Report 8615017 (Version 3)
Quarter: 2014Q1

REPORT INFORMATION
  Report Type: Spontaneous
  Country: CA (occurrence: CA)
  Receive Date: 20120614
  Receipt Date: 20140324
  Transmission Date: 20141002
  Serious: Yes (Hospitalization, Other)
  Sender: FDA-Public Use
  Company Number: CA-JNJFOC-20120603463

PATIENT
  Age: 35 Year
  Sex: Female
  Weight: 82 kg

DRUGS (11)
  1. REMICADE [Suspect]
     Indication: COLITIS ULCERATIVE
     Route: 042
  2. REMICADE [Suspect]
     Indication: COLITIS ULCERATIVE
     Dosage: TWO WEEK PRIOR TO HOSPITALIZATION
     Route: 042
     Dates: start: 2011
  3. REMICADE [Suspect]
     Indication: COLITIS ULCERATIVE
     Dosage: EXTRA EMERGENCY DOSE
     Route: 042
     Dates: start: 2011
  4. TYLENOL EXTRA STRENGTH [Suspect]
     Route: 048
  5. TYLENOL EXTRA STRENGTH [Suspect]
     Indication: PRODUCT USED FOR UNKNOWN INDICATION
     Route: 048
  6. PREDNISONE [Suspect]
     Indication: COLITIS ULCERATIVE
     Route: 048
     Dates: start: 20111024
  7. IMURAN [Suspect]
     Indication: PRODUCT USED FOR UNKNOWN INDICATION
     Route: 048
     Dates: start: 20110207
  8. PREGVIT [Concomitant]
     Route: 048
     Dates: start: 20111019
  9. FERROUS GLUCONATE [Concomitant]
     Route: 048
     Dates: start: 201110
  10. VIT D [Concomitant]
     Route: 048
     Dates: start: 201102
  11. CALCIUM [Concomitant]
     Route: 048
     Dates: start: 201102

REACTIONS (3)
  - Premature labour [Recovered/Resolved]
  - Exposure during pregnancy [Recovered/Resolved]
  - Colitis ulcerative [Unknown]
